FAERS Safety Report 9772566 (Version 4)
Quarter: 2014Q4

REPORT INFORMATION
  Report Type: Spontaneous
  Country: DE (occurrence: DE)
  Receive Date: 20131219
  Receipt Date: 20141223
  Transmission Date: 20150529
  Serious: Yes (Life-Threatening, Hospitalization, Disabling)
  Sender: FDA-Public Use
  Company Number: DE-BRACCO-001560

PATIENT
  Age: 67 Year
  Sex: Male

DRUGS (9)
  1. BISOPROLOL [Concomitant]
     Active Substance: BISOPROLOL
  2. DOMPERIDON [Concomitant]
     Active Substance: DOMPERIDONE
  3. ALLOPURINOL. [Concomitant]
     Active Substance: ALLOPURINOL
  4. MULTIHANCE [Suspect]
     Active Substance: GADOBENATE DIMEGLUMINE
     Indication: ANGIOGRAM
     Dates: start: 20130215, end: 20130215
  5. HCT [Concomitant]
     Active Substance: HYDROCHLOROTHIAZIDE
  6. BUDES [Concomitant]
     Active Substance: BUDESONIDE
  7. SIMVASTATIN. [Concomitant]
     Active Substance: SIMVASTATIN
  8. PANTOPRAZOLE [Concomitant]
     Active Substance: PANTOPRAZOLE SODIUM
  9. SALOFALK [Concomitant]
     Active Substance: MESALAMINE

REACTIONS (5)
  - Leg amputation [None]
  - Resuscitation [Recovered/Resolved]
  - Cardiac arrest [Recovered/Resolved]
  - Coma [None]
  - Anaphylactic shock [Recovered/Resolved with Sequelae]

NARRATIVE: CASE EVENT DATE: 20130215
